FAERS Safety Report 8976796 (Version 2)
Quarter: 2013Q1

REPORT INFORMATION
  Report Type: Spontaneous
  Country: CA (occurrence: CA)
  Receive Date: 20121220
  Receipt Date: 20130215
  Transmission Date: 20140127
  Serious: Yes (Hospitalization, Other)
  Sender: FDA-Public Use
  Company Number: CA-ELI_LILLY_AND_COMPANY-CA201212004681

PATIENT
  Age: 79 Year
  Sex: Female

DRUGS (16)
  1. FORTEO [Suspect]
     Indication: OSTEOPOROSIS
     Dosage: 20 UG, QD
     Route: 058
     Dates: start: 20111110, end: 20121103
  2. FORTEO [Suspect]
     Dosage: UNK
     Dates: start: 201212
  3. PANTOPRAZOLE [Concomitant]
     Dosage: UNK, UNKNOWN
  4. BISOPROLOL [Concomitant]
     Dosage: UNK, UNKNOWN
  5. BETAHISTINE [Concomitant]
     Dosage: UNK, UNKNOWN
  6. CITALOPRAM [Concomitant]
     Dosage: UNK, UNKNOWN
  7. HYDROCHLOROTHIAZIDE [Concomitant]
     Dosage: UNK, UNKNOWN
  8. POTASSIUM [Concomitant]
     Dosage: UNK, UNKNOWN
  9. DIOVAN [Concomitant]
     Dosage: UNK, UNKNOWN
  10. WARFARIN [Concomitant]
     Dosage: UNK, UNKNOWN
  11. LIPITOR [Concomitant]
     Dosage: UNK, UNKNOWN
  12. VITAMIN D [Concomitant]
     Dosage: UNK, UNKNOWN
  13. ACIDOPHILUS [Concomitant]
     Dosage: UNK, UNKNOWN
  14. VITALUX [Concomitant]
     Dosage: UNK, UNKNOWN
  15. PERCOCET [Concomitant]
     Dosage: UNK, UNKNOWN
  16. GRAVOL [Concomitant]
     Dosage: UNK, PRN

REACTIONS (1)
  - Myocardial infarction [Recovered/Resolved]
